FAERS Safety Report 8250499-8 (Version None)
Quarter: 2012Q2

REPORT INFORMATION
  Report Type: 
  Country: None (occurrence: None)
  Receive Date: 20120402
  Receipt Date: 20120402
  Transmission Date: 20120825
  Serious: Yes (Other)
  Sender: FDA-Public Use
  Company Number: None

PATIENT
  Sex: Female
  Weight: 48.534 kg

DRUGS (1)
  1. LEVOTHYROXINE SODIUM [Suspect]
     Indication: HYPOTHYROIDISM
     Dosage: 50 MICROGRAMS
     Route: 048
     Dates: start: 20111223, end: 20120301

REACTIONS (8)
  - EMOTIONAL DISORDER [None]
  - DECREASED APPETITE [None]
  - NAUSEA [None]
  - WEIGHT DECREASED [None]
  - PALPITATIONS [None]
  - NERVOUSNESS [None]
  - PANIC ATTACK [None]
  - ANXIETY [None]
